FAERS Safety Report 24705988 (Version 1)
Quarter: 2024Q4

REPORT INFORMATION
  Report Type: Spontaneous
  Country: US (occurrence: US)
  Receive Date: 20241206
  Receipt Date: 20241206
  Transmission Date: 20250114
  Serious: Yes (Hospitalization)
  Sender: MIRUM PHARMACEUTICALS
  Company Number: US-RETROPHLTD-2022TVT00284

PATIENT

DRUGS (2)
  1. CHOLBAM [Suspect]
     Active Substance: CHOLIC ACID
     Indication: Cerebrohepatorenal syndrome
     Dosage: 50 MILLIGRAM
     Route: 065
  2. CHOLBAM [Suspect]
     Active Substance: CHOLIC ACID
     Dosage: 100 MILLIGRAM, QD
     Route: 065
     Dates: start: 20200415

REACTIONS (4)
  - Seizure [Unknown]
  - Vomiting [Unknown]
  - Urinary tract infection [Unknown]
  - Heart rate increased [Unknown]
